FAERS Safety Report 5091688-3 (Version None)
Quarter: 2006Q3

REPORT INFORMATION
  Report Type: 
  Country: None (occurrence: None)
  Receive Date: 20060824
  Receipt Date: 20060811
  Transmission Date: 20061208
  Serious: Yes (Other)
  Sender: FDA-Public Use
  Company Number: 2006100682

PATIENT
  Age: 66 Year
  Sex: Male

DRUGS (7)
  1. TAHOR (ATORVASTATIN) [Suspect]
     Indication: PROPHYLAXIS
     Dates: end: 20060807
  2. METFORMIN (METFO0RMIN) [Concomitant]
  3. INDAPAPAMIDE (INDAPAPAMIDE) [Concomitant]
  4. PERINDOPRIL ERBUMINE [Concomitant]
  5. GLICLAZIDE (GLICLAZIDE) [Concomitant]
  6. LYSINE (LYSINE) [Concomitant]
  7. AMLODIPINE [Concomitant]
     Indication: PROPHYLAXIS
     Dates: end: 20060807

REACTIONS (7)
  - ASTHENIA [None]
  - DIABETES MELLITUS [None]
  - DISEASE RECURRENCE [None]
  - FATIGUE [None]
  - HEADACHE [None]
  - MYALGIA [None]
  - PYREXIA [None]
